FAERS Safety Report 12477838 (Version 1)
Quarter: 2016Q2

REPORT INFORMATION
  Report Type: Other
  Country: GB (occurrence: GB)
  Receive Date: 20160617
  Receipt Date: 20160617
  Transmission Date: 20160815
  Serious: Yes (Other)
  Sender: FDA-Public Use
  Company Number: GB-MYLANLABS-2016M1024390

PATIENT

DRUGS (2)
  1. TAMOXIFEN [Suspect]
     Active Substance: TAMOXIFEN
     Indication: PRODUCT USED FOR UNKNOWN INDICATION
     Dosage: UNK
     Route: 065
  2. HERCEPTIN [Suspect]
     Active Substance: TRASTUZUMAB
     Indication: PRODUCT USED FOR UNKNOWN INDICATION
     Dosage: 600 MG, UNK
     Route: 058

REACTIONS (8)
  - Hyperaesthesia [Unknown]
  - Pain of skin [Unknown]
  - Diarrhoea [Unknown]
  - Biliary tract disorder [Unknown]
  - Malaise [Unknown]
  - Erythema [Unknown]
  - Productive cough [Unknown]
  - Middle insomnia [Unknown]
